FAERS Safety Report 5320465-0 (Version None)
Quarter: 2007Q2

REPORT INFORMATION
  Report Type: 
  Country: None (occurrence: None)
  Receive Date: 20070509
  Receipt Date: 20070424
  Transmission Date: 20071010
  Serious: Yes (Death)
  Sender: FDA-Public Use
  Company Number: CA-GENENTECH-241075

PATIENT
  Sex: Female

DRUGS (1)
  1. AVASTIN [Suspect]
     Indication: COLON CANCER METASTATIC
     Dosage: 360 MG, Q2W
     Route: 042
     Dates: start: 20070221

REACTIONS (2)
  - BLOOD TEST ABNORMAL [None]
  - DEATH [None]
